FAERS Safety Report 24616499 (Version 1)
Quarter: 2024Q4

REPORT INFORMATION
  Report Type: Spontaneous
  Country: ZA (occurrence: ZA)
  Receive Date: 20241114
  Receipt Date: 20241114
  Transmission Date: 20250115
  Serious: Yes (Hospitalization)
  Sender: NOVO NORDISK
  Company Number: ZA-NOVOPROD-1311955

PATIENT
  Sex: Male

DRUGS (1)
  1. RYZODEG 70/30 [Suspect]
     Active Substance: INSULIN ASPART\INSULIN DEGLUDEC
     Indication: Product used for unknown indication
     Dosage: 32 IU, QD (18 UNITS MORNING AND 14 UNITS AT NIGHT)

REACTIONS (3)
  - Chest pain [Unknown]
  - Hyperglycaemia [Unknown]
  - Drug titration error [Unknown]
